FAERS Safety Report 21026702 (Version 1)
Quarter: 2022Q2

REPORT INFORMATION
  Report Type: Spontaneous
  Country: US (occurrence: US)
  Receive Date: 20220630
  Receipt Date: 20220630
  Transmission Date: 20220721
  Serious: Yes (Other)
  Sender: FDA-Public Use
  Company Number: US-SA-SAC20220627001587

PATIENT
  Age: 56 Year

DRUGS (1)
  1. ZANTAC [Suspect]
     Active Substance: RANITIDINE HYDROCHLORIDE
     Dosage: UNK, QW
     Route: 065
     Dates: start: 200701, end: 201712

REACTIONS (4)
  - Bladder cancer [Unknown]
  - Urinary tract neoplasm [Unknown]
  - Colon cancer [Unknown]
  - Renal disorder [Unknown]

NARRATIVE: CASE EVENT DATE: 20160101
